FAERS Safety Report 5102766-4 (Version None)
Quarter: 2006Q3

REPORT INFORMATION
  Report Type: 
  Country: None (occurrence: None)
  Receive Date: 20060907
  Receipt Date: 20060825
  Transmission Date: 20061208
  Serious: Yes (Death, Disabling, Other)
  Sender: FDA-Public Use
  Company Number: 2006071265

PATIENT
  Age: 66 Year
  Sex: Female

DRUGS (1)
  1. GABAPENTIN [Suspect]
     Indication: ABDOMINAL PAIN
     Dosage: 1800 MG (600 MG,3 IN 1 D),ORAL
     Route: 048

REACTIONS (5)
  - BLINDNESS TRANSIENT [None]
  - METASTASES TO LUNG [None]
  - METASTATIC NEOPLASM [None]
  - PANCREATIC CARCINOMA [None]
  - UNEVALUABLE EVENT [None]
